FAERS Safety Report 5732511-0 (Version None)
Quarter: 2008Q2

REPORT INFORMATION
  Report Type: 
  Country: None (occurrence: None)
  Receive Date: 20080508
  Receipt Date: 20080429
  Transmission Date: 20081010
  Serious: Yes (Hospitalization)
  Sender: FDA-Public Use
  Company Number: US-MERCK-0805USA00072

PATIENT
  Age: 24 Month
  Sex: Female

DRUGS (1)
  1. SINGULAIR [Suspect]
     Indication: RHINITIS PERENNIAL
     Route: 048

REACTIONS (3)
  - IMMUNOSUPPRESSION [None]
  - LYMPHADENOPATHY [None]
  - PYREXIA [None]
